FAERS Safety Report 9331785 (Version 1)
Quarter: 2013Q2

REPORT INFORMATION
  Report Type: Spontaneous
  Country: FR (occurrence: None)
  Receive Date: 20130603
  Receipt Date: 20130603
  Transmission Date: 20140414
  Serious: Yes (Death, Hospitalization, Other)
  Sender: FDA-Public Use
  Company Number: 2013P1006388

PATIENT
  Age: 56 Year
  Sex: Male

DRUGS (9)
  1. AMLODIPINE [Suspect]
  2. LACOSAMIDE [Suspect]
     Indication: SUICIDE ATTEMPT
  3. LAMOTRIGINE [Suspect]
  4. CARBAMAZEPINE [Suspect]
  5. PHENOBARBITAL [Suspect]
  6. CLONAZEPAM [Suspect]
  7. ATORVASTATIN [Suspect]
  8. GABAPENTIN [Concomitant]
  9. VALSARTAN [Concomitant]

REACTIONS (12)
  - Toxicity to various agents [None]
  - Suicide attempt [None]
  - Loss of consciousness [None]
  - Cardiac arrest [None]
  - Cardiac arrest [None]
  - Nodal rhythm [None]
  - Bundle branch block right [None]
  - Distributive shock [None]
  - Multi-organ failure [None]
  - Overdose [None]
  - Cardiotoxicity [None]
  - Drug interaction [None]
